FAERS Safety Report 9171048 (Version 4)
Quarter: 2015Q1

REPORT INFORMATION
  Report Type: Report from Study
  Country: JP (occurrence: JP)
  Receive Date: 20130319
  Receipt Date: 20150205
  Transmission Date: 20150721
  Serious: Yes (Hospitalization, Disabling)
  Sender: FDA-Public Use
  Company Number: JP-PFIZER INC-2013085138

PATIENT
  Age: 75 Year
  Sex: Female
  Weight: 42 kg

DRUGS (9)
  1. XALKORI [Suspect]
     Active Substance: CRIZOTINIB
     Indication: NON-SMALL CELL LUNG CANCER
     Dosage: 250 MG, 2X/DAY
     Route: 048
     Dates: start: 20130108, end: 20130111
  2. LENDORMIN [Concomitant]
     Active Substance: BROTIZOLAM
     Dosage: 0.125 MG, AS NEEDED
     Route: 048
  3. CODEINE PHOSPHATE [Concomitant]
     Active Substance: CODEINE PHOSPHATE
     Dosage: 2 G, AS NEEDED
     Route: 048
     Dates: start: 20121228
  4. MICARDIS [Concomitant]
     Active Substance: TELMISARTAN
     Dosage: 40 MG, 1X/DAY
     Route: 048
  5. DEPAS [Concomitant]
     Active Substance: ETIZOLAM
     Dosage: 0.5 MG, AS NEEDED
     Route: 048
     Dates: start: 20130109
  6. PRIMPERAN [Concomitant]
     Active Substance: METOCLOPRAMIDE HYDROCHLORIDE
     Dosage: 10 MG, AS NEEDED
     Dates: start: 20130109, end: 20130110
  7. AMLODIN [Concomitant]
     Active Substance: AMLODIPINE BESYLATE
     Dosage: 10 MG, 1X/DAY
     Route: 048
  8. MINIPLANOR [Concomitant]
     Dosage: 100 MG, 1X/DAY
     Route: 048
  9. RABEPRAZOLE [Concomitant]
     Active Substance: RABEPRAZOLE
     Dosage: 10 MG, 1X/DAY
     Route: 048

REACTIONS (1)
  - Renal impairment [Recovered/Resolved]

NARRATIVE: CASE EVENT DATE: 20130111
